FAERS Safety Report 21624265 (Version 1)
Quarter: 2022Q4

REPORT INFORMATION
  Report Type: Report from Study
  Country: JP (occurrence: JP)
  Receive Date: 20221121
  Receipt Date: 20221121
  Transmission Date: 20230113
  Serious: Yes (Death, Hospitalization)
  Sender: FDA-Public Use
  Company Number: JP-BAYER-2022A109709

PATIENT
  Age: 67 Year
  Sex: Male

DRUGS (17)
  1. VENTAVIS [Suspect]
     Active Substance: ILOPROST
     Indication: Pulmonary arterial hypertension
     Dosage: 2.5 UG, QD
     Route: 055
     Dates: start: 20200324, end: 20200324
  2. VENTAVIS [Suspect]
     Active Substance: ILOPROST
     Indication: Scleroderma
     Dosage: 2.5 UG, TID
     Route: 055
     Dates: start: 20200325, end: 20200325
  3. VENTAVIS [Suspect]
     Active Substance: ILOPROST
     Indication: Pulmonary arterial hypertension
     Dosage: 2.5 UG, QID
     Route: 055
     Dates: start: 20200326, end: 20200415
  4. VENTAVIS [Suspect]
     Active Substance: ILOPROST
     Indication: Pulmonary arterial hypertension
     Dosage: 2.5 UG, 5ID
     Route: 055
     Dates: start: 20200416, end: 20200422
  5. VENTAVIS [Suspect]
     Active Substance: ILOPROST
     Indication: Pulmonary arterial hypertension
     Dosage: 2.5 UG, 6ID
     Route: 055
     Dates: start: 20200423, end: 20200506
  6. VENTAVIS [Suspect]
     Active Substance: ILOPROST
     Indication: Pulmonary arterial hypertension
     Dosage: 5.0 UG, QID
     Route: 055
     Dates: start: 20200507, end: 20200520
  7. VENTAVIS [Suspect]
     Active Substance: ILOPROST
     Indication: Pulmonary arterial hypertension
     Dosage: 5 UG, 5ID
     Route: 055
     Dates: start: 20200521, end: 20200614
  8. VENTAVIS [Suspect]
     Active Substance: ILOPROST
     Indication: Pulmonary arterial hypertension
     Dosage: 5.0 UG, QID
     Route: 055
     Dates: start: 20200615, end: 20200618
  9. VENTAVIS [Suspect]
     Active Substance: ILOPROST
     Indication: Pulmonary arterial hypertension
     Dosage: 2.5 UG, QID
     Route: 055
     Dates: start: 20200619, end: 20200626
  10. OPSUMIT [Concomitant]
     Active Substance: MACITENTAN
     Indication: Pulmonary arterial hypertension
     Dosage: DAILY DOSE 10 MG
     Route: 048
     Dates: start: 20170703, end: 20210402
  11. UPTRAVI [Concomitant]
     Active Substance: SELEXIPAG
     Indication: Pulmonary arterial hypertension
     Dosage: DAILY DOSE 3.2 MG
     Route: 048
     Dates: start: 20200116, end: 20200501
  12. UPTRAVI [Concomitant]
     Active Substance: SELEXIPAG
     Indication: Pulmonary arterial hypertension
     Dosage: GRADUALLY INCREASED FROM 0.4 TO 3.2MG
     Route: 048
     Dates: start: 20200605, end: 20210402
  13. FEBUXOSTAT [Concomitant]
     Active Substance: FEBUXOSTAT
     Route: 048
  14. MOSAPRIDE CITRATE [Concomitant]
     Active Substance: MOSAPRIDE CITRATE
     Route: 048
  15. RABEPRAZOLE SODIUM [Concomitant]
     Active Substance: RABEPRAZOLE SODIUM
     Route: 048
  16. BUDEFORU [Concomitant]
     Route: 055
  17. ADEMPAS [Concomitant]
     Active Substance: RIOCIGUAT
     Indication: Pulmonary arterial hypertension
     Dosage: 1 MG
     Route: 048

REACTIONS (2)
  - Pulmonary hypertension [Fatal]
  - Peripheral circulatory failure [Not Recovered/Not Resolved]

NARRATIVE: CASE EVENT DATE: 20200416
